FAERS Safety Report 20370588 (Version 1)
Quarter: 2022Q1

REPORT INFORMATION
  Report Type: Spontaneous
  Country: DE (occurrence: DE)
  Receive Date: 20220124
  Receipt Date: 20220124
  Transmission Date: 20220423
  Serious: Yes (Death, Other)
  Sender: FDA-Public Use
  Company Number: DE-GILEAD-2022-0566460

PATIENT
  Sex: Male

DRUGS (1)
  1. YESCARTA [Suspect]
     Active Substance: AXICABTAGENE CILOLEUCEL
     Indication: Diffuse large B-cell lymphoma
     Dosage: 0.4-2 X10*8 CELLS, INFUSION DISPERSION
     Route: 042
     Dates: start: 20210823, end: 20210823

REACTIONS (2)
  - Sudden cardiac death [Fatal]
  - Dizziness [Unknown]

NARRATIVE: CASE EVENT DATE: 20220118
